FAERS Safety Report 5140633-0 (Version None)
Quarter: 2006Q4

REPORT INFORMATION
  Report Type: 
  Country: None (occurrence: None)
  Receive Date: 20061025
  Receipt Date: 20061016
  Transmission Date: 20070319
  Serious: Yes (Other)
  Sender: FDA-Public Use
  Company Number: 2006-08-0957

PATIENT
  Sex: Female

DRUGS (1)
  1. NASONEX (MOMETASONE FUORATE (NASAL)) (MOMETASONE FUROATE) [Suspect]
     Indication: DRUG USE FOR UNKNOWN INDICATION
     Dosage: O DF; NAS

REACTIONS (2)
  - AGEUSIA [None]
  - ANOSMIA [None]
